FAERS Safety Report 23447450 (Version 1)
Quarter: 2024Q1

REPORT INFORMATION
  Report Type: Spontaneous
  Country: FR (occurrence: FR)
  Receive Date: 20240126
  Receipt Date: 20240126
  Transmission Date: 20240409
  Serious: Yes (Life-Threatening, Hospitalization)
  Sender: FDA-Public Use
  Company Number: None

PATIENT
  Age: 57 Year
  Sex: Male
  Weight: 72 kg

DRUGS (4)
  1. KEPPRA [Suspect]
     Active Substance: LEVETIRACETAM
     Indication: Toxicity to various agents
     Dosage: 10 GRAM, ONE TIME DOSE
     Route: 048
     Dates: start: 20230414, end: 20230414
  2. LYRICA [Suspect]
     Active Substance: PREGABALIN
     Indication: Toxicity to various agents
     Dosage: 2100 MILLIGRAM, ONE TIME DOSE
     Route: 048
     Dates: start: 20230414, end: 20230414
  3. VALIUM [Suspect]
     Active Substance: DIAZEPAM
     Indication: Toxicity to various agents
     Dosage: 50 MILLIGRAM, ONE TIME DOSE
     Route: 048
     Dates: start: 20230414, end: 20230414
  4. ZOPICLONE [Suspect]
     Active Substance: ZOPICLONE
     Indication: Toxicity to various agents
     Dosage: 80 MILLIGRAM, ONE TIME DOSE
     Route: 048
     Dates: start: 20230414, end: 20230414

REACTIONS (3)
  - Cerebrovascular accident [Recovered/Resolved]
  - Coma [Recovered/Resolved]
  - Off label use [Unknown]

NARRATIVE: CASE EVENT DATE: 20230414
